FAERS Safety Report 22621549 (Version 1)
Quarter: 2023Q2

REPORT INFORMATION
  Report Type: Spontaneous
  Country: US (occurrence: None)
  Receive Date: 20230619
  Receipt Date: 20230619
  Transmission Date: 20230722
  Serious: Yes (unspecified)
  Sender: FDA-Public Use
  Company Number: None

PATIENT
  Age: 42 Year
  Sex: Male
  Weight: 83.7 kg

DRUGS (1)
  1. FINASTERIDE [Suspect]
     Active Substance: FINASTERIDE
     Indication: Alopecia
     Dates: start: 20191019, end: 20220818

REACTIONS (8)
  - Asthenia [None]
  - Cognitive disorder [None]
  - Memory impairment [None]
  - Erectile dysfunction [None]
  - Drug ineffective [None]
  - Chemical burn [None]
  - Penis disorder [None]
  - Scar [None]

NARRATIVE: CASE EVENT DATE: 20220924
